FAERS Safety Report 4971339-6 (Version None)
Quarter: 2006Q2

REPORT INFORMATION
  Report Type: 
  Country: None (occurrence: None)
  Receive Date: 20060413
  Receipt Date: 20050315
  Transmission Date: 20061013
  Serious: Yes (Other)
  Sender: FDA-Public Use
  Company Number: PHNR2005AU00655

PATIENT
  Age: 57 Year
  Sex: Male

DRUGS (4)
  1. LAMISIL [Suspect]
     Indication: ONYCHOMYCOSIS
     Dosage: 250 MG, QD
     Dates: start: 20041101
  2. AVAPRO [Concomitant]
  3. DI-GESIC [Concomitant]
     Dosage: OCCASIONAL
  4. BRUFEN [Suspect]
     Dosage: VERY OCCASIONALLY

REACTIONS (15)
  - BLOOD IRON INCREASED [None]
  - BURNING SENSATION [None]
  - DERMATITIS EXFOLIATIVE [None]
  - DIARRHOEA [None]
  - DYSGEUSIA [None]
  - DYSPEPSIA [None]
  - FAT INTOLERANCE [None]
  - FEELING HOT [None]
  - HIATUS HERNIA [None]
  - OESOPHAGITIS [None]
  - PANCREATIC INSUFFICIENCY [None]
  - PANCREATITIS [None]
  - PHOTOSENSITIVITY REACTION [None]
  - RASH [None]
  - VITAMIN D DEFICIENCY [None]
